FAERS Safety Report 10832197 (Version 2)
Quarter: 2015Q3

REPORT INFORMATION
  Report Type: Report from Study
  Country: US (occurrence: US)
  Receive Date: 20150219
  Receipt Date: 20150702
  Transmission Date: 20151125
  Serious: Yes (Hospitalization, Other)
  Sender: FDA-Public Use
  Company Number: US-AMGEN-USASL2015013112

PATIENT
  Age: 60 Year
  Sex: Female
  Weight: 73.47 kg

DRUGS (7)
  1. BUSCOPAN [Concomitant]
     Active Substance: BUTYLSCOPOLAMINE BROMIDE
     Indication: ANXIETY
     Dosage: 150 MG, QD
     Route: 048
     Dates: start: 20150124
  2. GABAPENTIN. [Concomitant]
     Active Substance: GABAPENTIN
     Indication: NEUROPATHY PERIPHERAL
     Dosage: 300 MG, UNK
     Route: 048
     Dates: start: 20150127
  3. KYPROLIS [Suspect]
     Active Substance: CARFILZOMIB
     Indication: PRODUCT USED FOR UNKNOWN INDICATION
     Dosage: 42 MG, D1,2,8,9,15,16
     Route: 042
     Dates: start: 20141106, end: 20141121
  4. LACTULOSE. [Concomitant]
     Active Substance: LACTULOSE
     Dosage: 30 MG, UNK
     Route: 048
     Dates: start: 20140313
  5. DECADRON [Concomitant]
     Active Substance: DEXAMETHASONE
     Indication: PLASMA CELL LEUKAEMIA
     Dosage: 4 MG, D1,2,8,9,15,16
     Route: 042
     Dates: start: 20141106, end: 20141111
  6. KYPROLIS [Suspect]
     Active Substance: CARFILZOMIB
     Indication: PLASMA CELL LEUKAEMIA
  7. ACYCLOVIR                          /00587301/ [Concomitant]
     Active Substance: ACYCLOVIR
     Indication: PROPHYLAXIS
     Dosage: 40 MG, BID
     Route: 048
     Dates: start: 20150124

REACTIONS (5)
  - Transfusion [Unknown]
  - Malaise [Unknown]
  - Thrombocytopenia [Recovered/Resolved]
  - Anaemia [Recovered/Resolved]
  - Plasma cell leukaemia [Unknown]

NARRATIVE: CASE EVENT DATE: 20141111
